FAERS Safety Report 5708249-2 (Version None)
Quarter: 2008Q2

REPORT INFORMATION
  Report Type: 
  Country: None (occurrence: None)
  Receive Date: 20080417
  Receipt Date: 20080408
  Transmission Date: 20081010
  Serious: Yes (Death, Other)
  Sender: FDA-Public Use
  Company Number: FR-ROCHE-550511

PATIENT
  Sex: Female

DRUGS (8)
  1. ROCEPHIN [Suspect]
     Indication: URINARY TRACT INFECTION
     Dosage: FORM INJECTABLE SOLUTION. DRUG RECEIVED FOR ONE YEAR
     Route: 065
  2. MYCOSTATIN [Interacting]
     Indication: DRUG USE FOR UNKNOWN INDICATION
     Route: 065
  3. PREVISCAN [Interacting]
     Indication: DRUG USE FOR UNKNOWN INDICATION
     Dosage: DRUG RECEIVED FOR 1 MONTH
     Route: 048
     Dates: end: 20070910
  4. PREVISCAN [Interacting]
     Dosage: DRUG RECEIVED FOR 1 MONTH
     Route: 048
     Dates: end: 20070910
  5. LASIX [Concomitant]
     Route: 048
     Dates: end: 20070910
  6. DIAMICRON [Concomitant]
     Route: 048
     Dates: end: 20070910
  7. DETENSIEL [Concomitant]
     Route: 048
     Dates: end: 20070910
  8. CORDARONE [Concomitant]
     Route: 048
     Dates: end: 20070910

REACTIONS (3)
  - CEREBROVASCULAR ACCIDENT [None]
  - DRUG INTERACTION [None]
  - PROTHROMBIN TIME SHORTENED [None]
